FAERS Safety Report 9441105 (Version 1)
Quarter: 2013Q3

REPORT INFORMATION
  Report Type: Spontaneous
  Country: GB (occurrence: None)
  Receive Date: 20130801
  Receipt Date: 20130801
  Transmission Date: 20140515
  Serious: Yes (Disabling)
  Sender: FDA-Public Use
  Company Number: AUR-APL-2013-06212

PATIENT
  Age: 82 Year
  Sex: Female
  Weight: 61.5 kg

DRUGS (8)
  1. GABAPENTIN (GABAPENTIN) [Suspect]
     Indication: PRODUCT USED FOR UNKNOWN INDICATION
     Dates: start: 20130402
  2. ALGESAL (ACETYLSALICYLIC ACID) [Concomitant]
  3. GLANDOSANE (GLANDOSANE /01287301/) [Concomitant]
  4. MOVELAT (MOVELAT /00479601/) [Concomitant]
  5. NAPROXEN (NAPROXEN) [Concomitant]
  6. OMEPRAZOLE (OMEPRAZOLE) [Concomitant]
  7. PREDNISOLONE (PREDNISOLONE) [Concomitant]
  8. SOLIFENACIN SUCCINATE (SOLIFENACIN SUCCINATE) [Concomitant]

REACTIONS (9)
  - Feeling abnormal [None]
  - Headache [None]
  - Renal impairment [None]
  - Weight decreased [None]
  - Malaise [None]
  - Dry skin [None]
  - Thirst [None]
  - Dry mouth [None]
  - Blood viscosity increased [None]
